FAERS Safety Report 8039817-3 (Version None)
Quarter: 2012Q1

REPORT INFORMATION
  Report Type: 
  Country: None (occurrence: None)
  Receive Date: 20120111
  Receipt Date: 20111220
  Transmission Date: 20120608
  Serious: No
  Sender: FDA-Public Use
  Company Number: US-AMGEN-USASP2011059738

PATIENT
  Age: 41 Year
  Sex: Female

DRUGS (2)
  1. ENBREL [Suspect]
     Indication: PSORIASIS
     Dosage: 50 MG, 2 TIMES/WK
     Route: 058
     Dates: start: 20110811
  2. MOBIC [Suspect]

REACTIONS (5)
  - SWELLING FACE [None]
  - ANGIOEDEMA [None]
  - ERYTHEMA [None]
  - PRURITUS GENERALISED [None]
  - URTICARIA [None]
